FAERS Safety Report 7121103-7 (Version None)
Quarter: 2010Q4

REPORT INFORMATION
  Report Type: 
  Country: None (occurrence: None)
  Receive Date: 20101124
  Receipt Date: 20100616
  Transmission Date: 20110411
  Serious: Yes (Other)
  Sender: FDA-Public Use
  Company Number: US-PFIZER INC-2010065035

PATIENT
  Sex: Female
  Weight: 54.422 kg

DRUGS (5)
  1. TIKOSYN [Suspect]
     Indication: ATRIAL FIBRILLATION
     Dosage: 250 UG, 2X/DAY
     Route: 048
     Dates: start: 20080201
  2. ACETYLSALICYLIC ACID [Concomitant]
     Dosage: 81 MG, 2X/WEEK
  3. POTASSIUM [Concomitant]
     Dosage: UNK
  4. METOPROLOL [Concomitant]
     Dosage: 50 MG, 1X/DAY
  5. TUMS [Concomitant]
     Dosage: UNK

REACTIONS (2)
  - ATRIAL FLUTTER [None]
  - HEART RATE INCREASED [None]
